FAERS Safety Report 7673078-X (Version None)
Quarter: 2011Q3

REPORT INFORMATION
  Report Type: 
  Country: None (occurrence: None)
  Receive Date: 20110810
  Receipt Date: 20110802
  Transmission Date: 20111222
  Serious: Yes (Hospitalization, Other)
  Sender: FDA-Public Use
  Company Number: GB-AMGEN-GBRSP2011038034

PATIENT
  Age: 85 Year
  Sex: Female
  Weight: 57.15 kg

DRUGS (10)
  1. PREDNISOLONE [Concomitant]
     Dosage: UNK UNK, UNK
  2. TRAMADOL HCL [Concomitant]
     Dosage: UNK
  3. ENBREL [Suspect]
     Indication: RHEUMATOID ARTHRITIS
     Dosage: 50 MG, WEEKLY
     Route: 058
  4. FERROUS FUMARATE [Concomitant]
     Dosage: UNK UNK, UNK
  5. RABEPRAZOLE SODIUM [Concomitant]
     Dosage: UNK
  6. VITAMIN B12                        /00056201/ [Concomitant]
     Dosage: UNK UNK, UNK
  7. ALENDRONIC ACID [Concomitant]
     Dosage: UNK UNK, UNK
  8. BENDROFLUMETHIAZIDE [Concomitant]
     Dosage: UNK UNK, UNK
  9. ACETAMINOPHEN [Concomitant]
     Dosage: UNK UNK, UNK
  10. ADCAL-D3 [Concomitant]
     Dosage: UNK UNK, UNK

REACTIONS (1)
  - ACUTE MYOCARDIAL INFARCTION [None]
